FAERS Safety Report 8168665-9 (Version None)
Quarter: 2012Q1

REPORT INFORMATION
  Report Type: 
  Country: None (occurrence: None)
  Receive Date: 20120103
  Receipt Date: 20110926
  Transmission Date: 20120608
  Serious: No
  Sender: FDA-Public Use
  Company Number: AE-2011-001830

PATIENT
  Age: 55 Year
  Sex: Male
  Weight: 79.3795 kg

DRUGS (3)
  1. PEGASYS [Concomitant]
  2. RIBAVIRIN [Concomitant]
  3. INCIVEK [Suspect]
     Dosage: 2250 MG (750 MG, 1 IN 8 HR),ORAL
     Route: 048
     Dates: start: 20110920

REACTIONS (5)
  - ASTHENIA [None]
  - ANORECTAL DISCOMFORT [None]
  - INSOMNIA [None]
  - FATIGUE [None]
  - NAUSEA [None]
